FAERS Safety Report 8372560 (Version 2)
Quarter: 2013Q1

REPORT INFORMATION
  Report Type: Report from Study
  Country: US (occurrence: US)
  Receive Date: 20120129
  Receipt Date: 20130129
  Transmission Date: 20140127
  Serious: Yes (Hospitalization)
  Sender: FDA-Public Use
  Company Number: US-ABBOTT-11P-163-0873068-00

PATIENT
  Sex: Male
  Weight: 122.58 kg

DRUGS (7)
  1. HUMIRA 40 MG/ 0.8 ML PRE-FILLED SYRINGE [Suspect]
     Indication: RHEUMATOID ARTHRITIS
     Dates: start: 2002
  2. METHOTREXATE [Suspect]
     Indication: RHEUMATOID ARTHRITIS
  3. CRESTOR [Concomitant]
     Indication: LIPIDS INCREASED
  4. ZETIA [Concomitant]
     Indication: LIPIDS INCREASED
  5. FLOMAX [Concomitant]
     Indication: POLLAKIURIA
  6. SYNTHROID [Concomitant]
     Indication: HYPOTHYROIDISM
     Dates: start: 201111
  7. SULFAZINE [Concomitant]
     Indication: RHEUMATOID ARTHRITIS
     Dates: start: 201105

REACTIONS (4)
  - Dyspnoea [Not Recovered/Not Resolved]
  - Pulmonary mycosis [Not Recovered/Not Resolved]
  - Rheumatoid arthritis [Not Recovered/Not Resolved]
  - Hypothyroidism [Not Recovered/Not Resolved]
